FAERS Safety Report 16138989 (Version 1)
Quarter: 2019Q1

REPORT INFORMATION
  Report Type: Spontaneous
  Country: US (occurrence: US)
  Receive Date: 20190330
  Receipt Date: 20190330
  Transmission Date: 20190418
  Serious: No
  Sender: FDA-Public Use
  Company Number: US-GLAXOSMITHKLINE-US2019054582

PATIENT
  Age: 68 Year
  Sex: Female

DRUGS (1)
  1. NICODERM CQ [Suspect]
     Active Substance: NICOTINE
     Indication: SMOKING CESSATION THERAPY
     Dosage: UNK

REACTIONS (6)
  - Application site pruritus [Recovering/Resolving]
  - Application site erythema [Recovering/Resolving]
  - Off label use [Unknown]
  - Application site rash [Recovering/Resolving]
  - Feeling abnormal [Recovering/Resolving]
  - Wrong technique in product usage process [Unknown]
